FAERS Safety Report 4606010-3 (Version None)
Quarter: 2005Q2

REPORT INFORMATION
  Report Type: 
  Country: None (occurrence: None)
  Receive Date: 20050303
  Receipt Date: 20041101
  Transmission Date: 20051028
  Serious: No
  Sender: FDA-Public Use
  Company Number: 200420923BWH

PATIENT
  Age: 58 Year
  Sex: Male
  Weight: 78.0187 kg

DRUGS (7)
  1. LEVITRA [Suspect]
     Indication: ERECTILE DYSFUNCTION
     Dosage: SEE IMAGE
     Route: 048
  2. LEVITRA [Suspect]
     Indication: ERECTILE DYSFUNCTION
     Dosage: SEE IMAGE
     Route: 048
     Dates: start: 20031001
  3. LEVITRA [Suspect]
     Indication: ERECTILE DYSFUNCTION
     Dosage: SEE IMAGE
     Route: 048
     Dates: start: 20041023
  4. LEVITRA [Suspect]
     Indication: ERECTILE DYSFUNCTION
     Dosage: SEE IMAGE
     Route: 048
     Dates: start: 20041031
  5. VIAGRA [Concomitant]
  6. LISINOPRIL [Concomitant]
  7. QUESTRAN [Concomitant]

REACTIONS (3)
  - ERECTILE DYSFUNCTION [None]
  - FLUSHING [None]
  - NASAL CONGESTION [None]
